FAERS Safety Report 6819598-9 (Version None)
Quarter: 2010Q3

REPORT INFORMATION
  Report Type: 
  Country: None (occurrence: None)
  Receive Date: 20100701
  Receipt Date: 20091105
  Transmission Date: 20110219
  Serious: No
  Sender: FDA-Public Use
  Company Number: US-TEVA-214362USA

PATIENT
  Sex: Female
  Weight: 55.388 kg

DRUGS (4)
  1. AZILECT [Suspect]
     Indication: PARKINSON'S DISEASE
     Route: 048
     Dates: start: 20081101
  2. SINEMET [Concomitant]
     Indication: PARKINSON'S DISEASE
  3. PRAMIPEXOLE DIHYDROCHLORIDE [Concomitant]
     Indication: PARKINSON'S DISEASE
  4. ESTRATEST H.S. [Concomitant]

REACTIONS (1)
  - ABNORMAL LOSS OF WEIGHT [None]
